FAERS Safety Report 20135716 (Version 3)
Quarter: 2022Q1

REPORT INFORMATION
  Report Type: Spontaneous
  Country: CO (occurrence: CO)
  Receive Date: 20211201
  Receipt Date: 20220107
  Transmission Date: 20220423
  Serious: No
  Sender: FDA-Public Use
  Company Number: CO-PFIZER INC-2020349316

PATIENT
  Age: 13 Year
  Sex: Male

DRUGS (1)
  1. GENOTROPIN [Suspect]
     Active Substance: SOMATROPIN
     Indication: Epiphyseal disorder
     Dosage: 1.8 MG (6 DOSES PER WEEK)
     Route: 058
     Dates: start: 202009

REACTIONS (5)
  - Drug dose omission by device [Unknown]
  - Device issue [Unknown]
  - Product physical issue [Unknown]
  - Wrong technique in device usage process [Unknown]
  - Off label use [Unknown]

NARRATIVE: CASE EVENT DATE: 20200901
